FAERS Safety Report 9353717 (Version 1)
Quarter: 2013Q2

REPORT INFORMATION
  Report Type: Spontaneous
  Country: NL (occurrence: NL)
  Receive Date: 20130618
  Receipt Date: 20130618
  Transmission Date: 20140414
  Serious: Yes (Life-Threatening, Hospitalization)
  Sender: FDA-Public Use
  Company Number: NL-BAYER-2013-071732

PATIENT
  Age: 47 Year
  Sex: Female
  Weight: 80 kg

DRUGS (1)
  1. QLAIRA [Suspect]
     Indication: MENSTRUAL DISORDER
     Dosage: 1 DF, QD
     Dates: start: 2011, end: 201208

REACTIONS (1)
  - Nephrolithiasis [Recovered/Resolved with Sequelae]
